FAERS Safety Report 8617032-X (Version None)
Quarter: 2012Q3

REPORT INFORMATION
  Report Type: 
  Country: None (occurrence: None)
  Receive Date: 20120823
  Receipt Date: 20120814
  Transmission Date: 20120928
  Serious: No
  Sender: FDA-Public Use
  Company Number: US-009507513-1208USA006569

PATIENT

DRUGS (2)
  1. VITAMIN D [Concomitant]
  2. PROPECIA [Suspect]
     Indication: ANDROGENETIC ALOPECIA
     Dosage: 1 MG, QD
     Route: 048
     Dates: start: 20000101, end: 20120501

REACTIONS (5)
  - AMNESIA [None]
  - DIARRHOEA [None]
  - ERECTILE DYSFUNCTION [None]
  - ABDOMINAL PAIN [None]
  - DRY EYE [None]
